FAERS Safety Report 11547078 (Version 1)
Quarter: 2015Q3

REPORT INFORMATION
  Report Type: Spontaneous
  Country: US (occurrence: US)
  Receive Date: 20150924
  Receipt Date: 20150924
  Transmission Date: 20151125
  Serious: Yes (Other)
  Sender: FDA-Public Use
  Company Number: US-TARO-2015TAR00872

PATIENT
  Age: 92 Year
  Sex: Male

DRUGS (3)
  1. CARBAMAZEPINE TABLETS USP 200 MG [Suspect]
     Active Substance: CARBAMAZEPINE
     Indication: AGGRESSION
     Dosage: 200 MG, 3X/DAY
     Route: 048
     Dates: start: 2015
  2. CARBAMAZEPINE 100 MG (TEVA) [Suspect]
     Active Substance: CARBAMAZEPINE
     Dosage: 100 MG, 3X/DAY
     Dates: start: 20150620, end: 2015
  3. CARBAMAZEPINE TABLETS USP 200 MG [Suspect]
     Active Substance: CARBAMAZEPINE
     Indication: AGGRESSION

REACTIONS (7)
  - Dysphemia [Recovering/Resolving]
  - Off label use [Recovered/Resolved]
  - Hallucination [Unknown]
  - Aphasia [Recovered/Resolved]
  - Incontinence [Recovered/Resolved]
  - Catatonia [Unknown]
  - General physical health deterioration [Recovering/Resolving]

NARRATIVE: CASE EVENT DATE: 2015
